FAERS Safety Report 21360723 (Version 1)
Quarter: 2022Q3

REPORT INFORMATION
  Report Type: Spontaneous
  Country: AU (occurrence: None)
  Receive Date: 20220921
  Receipt Date: 20220921
  Transmission Date: 20221027
  Serious: Yes (Hospitalization)
  Sender: FDA-Public Use
  Company Number: 2022A324012

PATIENT
  Age: 34 Year
  Sex: Female

DRUGS (7)
  1. SEROQUEL [Suspect]
     Active Substance: QUETIAPINE FUMARATE
     Indication: Product used for unknown indication
     Dosage: ON SEROQUEL FOR 15 YEARS, TAKING 400 MG DAILY UP UNTIL A WEEK AGO.
     Route: 065
  2. SEROQUEL [Suspect]
     Active Substance: QUETIAPINE FUMARATE
     Indication: Product used for unknown indication
     Dosage: DOSE WAS REDUCED TO 200 MG DAILY DUE TO ONSET OF DYSPHAGIA
     Route: 065
  3. SEROQUEL [Suspect]
     Active Substance: QUETIAPINE FUMARATE
     Indication: Product used for unknown indication
     Dosage: IMMEDIATE RESOLUTION OF DYSPHAGIA BUT MOOD BECAME ELEVATED SO INCREASED BACK TO 400 MG DAILY ON M...
     Route: 065
  4. LITHIUM [Concomitant]
     Active Substance: LITHIUM
     Dosage: 1G NOCTE
  5. ESCITALOPRAM [Concomitant]
     Active Substance: ESCITALOPRAM OXALATE
     Dosage: 20 MG MANE
  6. ROSUVASTATIN [Concomitant]
     Active Substance: ROSUVASTATIN
  7. THYROXINE [Concomitant]
     Active Substance: LEVOTHYROXINE

REACTIONS (6)
  - Dry mouth [Unknown]
  - Muscle twitching [Unknown]
  - Dizziness [Unknown]
  - Dysphagia [Unknown]
  - Euphoric mood [Unknown]
  - Dysphagia [Recovered/Resolved]
